FAERS Safety Report 5127314-4 (Version None)
Quarter: 2006Q4

REPORT INFORMATION
  Report Type: 
  Country: None (occurrence: None)
  Receive Date: 20061013
  Receipt Date: 20061003
  Transmission Date: 20070319
  Serious: Yes (Hospitalization)
  Sender: FDA-Public Use
  Company Number: US-ABBOTT-06P-163-0345859-00

PATIENT
  Sex: Female

DRUGS (15)
  1. HUMIRA [Suspect]
     Indication: RHEUMATOID ARTHRITIS
     Route: 058
     Dates: start: 20050820
  2. METHOTREXATE [Concomitant]
     Indication: RHEUMATOID ARTHRITIS
     Route: 030
  3. NAPROXEN [Concomitant]
     Indication: DRUG USE FOR UNKNOWN INDICATION
     Route: 048
  4. HYDROCODONE BITARTRATE [Concomitant]
     Indication: PAIN
     Route: 048
  5. DARVOCET [Concomitant]
     Indication: PAIN
     Dosage: 10/100
     Route: 048
  6. LISINOPRIL [Concomitant]
     Indication: DRUG USE FOR UNKNOWN INDICATION
     Route: 048
  7. CLOPIDOGREL BISULFATE [Concomitant]
     Indication: DRUG USE FOR UNKNOWN INDICATION
     Route: 048
  8. ASPIRIN [Concomitant]
     Indication: DRUG USE FOR UNKNOWN INDICATION
     Route: 048
  9. PHENYTOIN SODIUM [Concomitant]
     Indication: CONVULSION
     Route: 048
  10. ALPRAZOLAM [Concomitant]
     Indication: ANXIETY
     Route: 048
  11. FOLIC ACID [Concomitant]
     Indication: DRUG USE FOR UNKNOWN INDICATION
     Route: 048
  12. CALCIUM GLUCONATE [Concomitant]
     Indication: DRUG USE FOR UNKNOWN INDICATION
     Route: 048
  13. MV [Concomitant]
     Indication: DRUG USE FOR UNKNOWN INDICATION
     Route: 048
  14. ALENDRONATE SODIUM [Concomitant]
     Indication: DRUG USE FOR UNKNOWN INDICATION
     Route: 048
  15. LYSINE [Concomitant]
     Indication: DRUG USE FOR UNKNOWN INDICATION
     Route: 048

REACTIONS (4)
  - CEREBROVASCULAR ACCIDENT [None]
  - CONVULSION [None]
  - MYOCARDIAL INFARCTION [None]
  - VENTRICULAR TACHYCARDIA [None]
